FAERS Safety Report 16749199 (Version 1)
Quarter: 2019Q3

REPORT INFORMATION
  Report Type: Spontaneous
  Country: FR (occurrence: FR)
  Receive Date: 20190828
  Receipt Date: 20190828
  Transmission Date: 20191005
  Serious: Yes (Death)
  Sender: FDA-Public Use
  Company Number: FR-TEVA-2019-FR-1047957

PATIENT
  Age: 57 Year
  Sex: Female
  Weight: 60 kg

DRUGS (7)
  1. DECONTRACTYL (MEPHENESIN) [Suspect]
     Active Substance: MEPHENESIN
     Indication: NECK PAIN
     Dosage: 1 TO 2 BOXES UP TO 5 ACCORDING TO THE ENTOURAGE
     Route: 048
     Dates: start: 2012
  2. VENLAFAXINE [Suspect]
     Active Substance: VENLAFAXINE HYDROCHLORIDE
     Indication: BURNOUT SYNDROME
     Dosage: 3 DOSAGE FORMS DAILY;
     Route: 048
     Dates: start: 201812
  3. TIAPRIDE BASE [Suspect]
     Active Substance: TIAPRIDE HYDROCHLORIDE
     Indication: PRODUCT USED FOR UNKNOWN INDICATION
     Route: 048
  4. PRAZEPAM [Suspect]
     Active Substance: PRAZEPAM
     Indication: BURNOUT SYNDROME
     Route: 048
     Dates: start: 201812
  5. LORMETAZEPAM [Concomitant]
     Active Substance: LORMETAZEPAM
     Indication: BURNOUT SYNDROME
     Route: 048
     Dates: start: 201812
  6. TERCIAN 25 MG, COMPRIM? PELLICUL? S?CABLE [Concomitant]
     Active Substance: CYAMEMAZINE
     Indication: BURNOUT SYNDROME
     Route: 048
     Dates: start: 201812
  7. THERALENE [Suspect]
     Active Substance: TRIMEPRAZINE
     Indication: BURNOUT SYNDROME
     Route: 048
     Dates: start: 201812

REACTIONS (4)
  - Aspiration [Fatal]
  - Depressed level of consciousness [Fatal]
  - Poisoning deliberate [Fatal]
  - Respiratory depression [Fatal]
